FAERS Safety Report 20228683 (Version 1)
Quarter: 2021Q4

REPORT INFORMATION
  Report Type: Spontaneous
  Country: US (occurrence: None)
  Receive Date: 20211225
  Receipt Date: 20211225
  Transmission Date: 20220304
  Serious: No
  Sender: FDA-Public Use
  Company Number: 2021A899829

PATIENT
  Sex: Female

DRUGS (2)
  1. SYMBICORT [Suspect]
     Active Substance: BUDESONIDE\FORMOTEROL FUMARATE DIHYDRATE
     Dosage: 160.0MG UNKNOWN
     Route: 055
  2. ASMANEX HFA [Concomitant]
     Active Substance: MOMETASONE FUROATE

REACTIONS (2)
  - Cough [Unknown]
  - Drug ineffective [Unknown]
